FAERS Safety Report 5094260-4 (Version None)
Quarter: 2006Q3

REPORT INFORMATION
  Report Type: 
  Country: None (occurrence: None)
  Receive Date: 20060831
  Receipt Date: 20060731
  Transmission Date: 20061208
  Serious: Yes (Hospitalization)
  Sender: FDA-Public Use
  Company Number: JP-JPN-A200602911

PATIENT
  Age: 85 Year
  Sex: Female

DRUGS (10)
  1. VALTREX [Suspect]
     Indication: HERPES ZOSTER
     Dosage: 1000MG THREE TIMES PER DAY
     Route: 048
     Dates: start: 20060719, end: 20060720
  2. SELBEX [Concomitant]
     Indication: GASTRITIS
     Dosage: 150MG PER DAY
     Route: 048
  3. FOIPAN [Concomitant]
     Indication: PANCREATITIS CHRONIC
     Dosage: 600MG PER DAY
     Route: 048
  4. SERMION [Concomitant]
     Indication: CEREBRAL INFARCTION
     Dosage: 5MG PER DAY
     Route: 048
  5. CYANOCOBALAMIN [Concomitant]
     Indication: NEURALGIA
     Dosage: 1500MG PER DAY
     Route: 048
     Dates: start: 20060715, end: 20060720
  6. NEUROTROPIN [Concomitant]
     Indication: NEURALGIA
     Dosage: 8IU PER DAY
     Route: 048
     Dates: start: 20060715, end: 20060720
  7. ALLELOCK [Concomitant]
     Indication: DRUG ERUPTION
     Dosage: 10MG PER DAY
     Route: 048
     Dates: start: 20060720, end: 20060727
  8. ARASENA-A [Concomitant]
     Indication: HERPES ZOSTER
     Dosage: 600MG PER DAY
     Route: 042
     Dates: start: 20060714, end: 20060718
  9. PENTCILLIN [Concomitant]
     Indication: WOUND INFECTION
     Dosage: 4G PER DAY
     Route: 042
     Dates: start: 20060714, end: 20060720
  10. NEOPHAGEN C [Concomitant]
     Indication: DRUG ERUPTION
     Dosage: 20ML PER DAY
     Route: 042
     Dates: start: 20060722, end: 20060724

REACTIONS (2)
  - ECZEMA [None]
  - URTICARIA [None]
